FAERS Safety Report 6430478-3 (Version None)
Quarter: 2009Q4

REPORT INFORMATION
  Report Type: 
  Country: None (occurrence: None)
  Receive Date: 20091106
  Receipt Date: 20091030
  Transmission Date: 20100525
  Serious: Yes (Hospitalization, Other)
  Sender: FDA-Public Use
  Company Number: US-ELI_LILLY_AND_COMPANY-US200910008033

PATIENT
  Sex: Female

DRUGS (20)
  1. HUMALOG [Suspect]
     Indication: TYPE 1 DIABETES MELLITUS
     Dosage: 10 U, EACH MORNING
     Dates: start: 20000101, end: 20080101
  2. HUMALOG [Suspect]
     Dosage: 10 U, OTHER
     Dates: start: 20000101, end: 20080101
  3. HUMALOG [Suspect]
     Dosage: 15 U, EACH EVENING
     Dates: start: 20000101, end: 20080101
  4. HUMALOG [Suspect]
     Dosage: 10 U, EACH MORNING
     Dates: start: 20080101
  5. HUMALOG [Suspect]
     Dosage: 10 U, OTHER
     Dates: start: 20080101
  6. HUMALOG [Suspect]
     Dosage: 15 U, EACH EVENING
     Dates: start: 20080101
  7. PROZAC [Concomitant]
     Dosage: UNK, UNK
     Dates: start: 19960101
  8. LANTUS [Concomitant]
  9. ALBUTEROL [Concomitant]
  10. XANAX [Concomitant]
  11. AMITRIPTYLINE [Concomitant]
  12. COUMADIN [Concomitant]
  13. PRILOSEC [Concomitant]
  14. LASIX [Concomitant]
  15. NEURONTIN [Concomitant]
  16. MORPHINE [Concomitant]
  17. NIASPAN [Concomitant]
  18. POTASSIUM CHLORIDE [Concomitant]
  19. REQUIP [Concomitant]
  20. WELCHOL [Concomitant]

REACTIONS (12)
  - AMNESIA [None]
  - BLINDNESS [None]
  - BLOOD GLUCOSE INCREASED [None]
  - DIABETIC NEUROPATHY [None]
  - FEELING ABNORMAL [None]
  - HYPOGLYCAEMIC UNCONSCIOUSNESS [None]
  - PANCREATIC OPERATION [None]
  - PSORIASIS [None]
  - PSORIATIC ARTHROPATHY [None]
  - TREMOR [None]
  - UNRESPONSIVE TO STIMULI [None]
  - WEIGHT DECREASED [None]
